FAERS Safety Report 5757163-5 (Version None)
Quarter: 2008Q2

REPORT INFORMATION
  Report Type: 
  Country: None (occurrence: None)
  Receive Date: 20080529
  Receipt Date: 20080519
  Transmission Date: 20081010
  Serious: Yes (Other)
  Sender: FDA-Public Use
  Company Number: TPA2008A00741

PATIENT
  Age: 42 Year
  Sex: Female
  Weight: 105.6881 kg

DRUGS (9)
  1. PIOGLITAZONE HCL [Suspect]
     Indication: DIABETES MELLITUS
     Dosage: 30 MG, 1 IN 1 D, PER ORAL
     Route: 048
     Dates: start: 20030101, end: 20040518
  2. METFORMIN HCL [Concomitant]
  3. GLIPIZIDE [Concomitant]
  4. ENALAPRIL MALEATE [Concomitant]
  5. HYDROCHLOROTHIAZIDE [Concomitant]
  6. ASPIRIN [Concomitant]
  7. METHADONE HCL [Concomitant]
  8. GABAPENTIN [Concomitant]
  9. FLUOXETINE [Concomitant]

REACTIONS (3)
  - ABORTION SPONTANEOUS [None]
  - MATERNAL DRUGS AFFECTING FOETUS [None]
  - PREGNANCY [None]
